FAERS Safety Report 10769311 (Version 1)
Quarter: 2015Q1

REPORT INFORMATION
  Report Type: Spontaneous
  Country: US (occurrence: US)
  Receive Date: 20150206
  Receipt Date: 20150206
  Transmission Date: 20150721
  Serious: Yes (Hospitalization)
  Sender: FDA-Public Use
  Company Number: US-MALLINCKRODT-T201501015

PATIENT
  Age: 26 Year
  Sex: Male

DRUGS (9)
  1. ROXICODONE [Suspect]
     Active Substance: OXYCODONE HYDROCHLORIDE
     Indication: BACK PAIN
     Dosage: UNK
     Route: 065
     Dates: start: 2011, end: 2011
  2. CLONAZEPAM. [Suspect]
     Active Substance: CLONAZEPAM
     Indication: BACK PAIN
     Dosage: UNK
     Route: 065
     Dates: start: 2011, end: 2011
  3. HEROIN [Suspect]
     Active Substance: DIACETYLMORPHINE
     Indication: PRODUCT USED FOR UNKNOWN INDICATION
     Route: 065
  4. FIORICET [Suspect]
     Active Substance: ACETAMINOPHEN\BUTALBITAL\CAFFEINE
     Indication: BACK PAIN
     Dosage: UNK
     Route: 065
     Dates: start: 2011, end: 2011
  5. TRAZODONE [Suspect]
     Active Substance: TRAZODONE HYDROCHLORIDE
     Indication: BACK PAIN
     Dosage: UNK
     Route: 065
     Dates: start: 2011, end: 2011
  6. SOMA [Suspect]
     Active Substance: CARISOPRODOL
     Indication: BACK PAIN
     Dosage: UNK
     Route: 065
     Dates: start: 2011, end: 2011
  7. METHADOSE [Suspect]
     Active Substance: METHADONE HYDROCHLORIDE
     Indication: BACK PAIN
     Dosage: UNK
     Route: 065
     Dates: start: 2011, end: 2011
  8. MORPHINE [Suspect]
     Active Substance: MORPHINE
     Indication: BACK PAIN
     Dosage: UNK
     Route: 065
     Dates: start: 2011, end: 2011
  9. DILAUDID [Suspect]
     Active Substance: HYDROMORPHONE HYDROCHLORIDE
     Indication: BACK PAIN
     Dosage: UNK
     Route: 065
     Dates: start: 2011, end: 2011

REACTIONS (2)
  - Post-traumatic stress disorder [Unknown]
  - Drug dependence [Unknown]
